FAERS Safety Report 7521907-2 (Version None)
Quarter: 2011Q2

REPORT INFORMATION
  Report Type: 
  Country: None (occurrence: None)
  Receive Date: 20110603
  Receipt Date: 20110530
  Transmission Date: 20111010
  Serious: Yes (Death, Hospitalization)
  Sender: FDA-Public Use
  Company Number: FR-BRISTOL-MYERS SQUIBB COMPANY-15737091

PATIENT
  Age: 59 Year
  Sex: Male

DRUGS (3)
  1. ERBITUX [Suspect]
     Indication: HEAD AND NECK CANCER
     Dosage: RECENT ON 07JUN10,612MG/M2 ONCE:19APR2008,389MG:INITIAL DOSE -7JUN10.
     Route: 042
     Dates: start: 20080419, end: 20100607
  2. FLUOROURACIL [Suspect]
     Indication: HEAD AND NECK CANCER
     Dosage: IV INFUSION.RECENT INFUSION 10-JUN-2010.ON THE 1ST 4 DAY OF A 21 DAY CYCLE,12ADMINISTRATION
     Route: 042
     Dates: start: 20100424, end: 20100610
  3. CARBOPLATIN [Suspect]
     Indication: HEAD AND NECK CANCER
     Dosage: RECENT INFUSION 10-JUN-2010.ON THE 1ST 4 DAYS OF 21 DAY CYCLE,12ADMINISTRATION
     Route: 042
     Dates: start: 20100424, end: 20100610

REACTIONS (4)
  - SHOCK [None]
  - FEBRILE NEUTROPENIA [None]
  - GENERAL PHYSICAL HEALTH DETERIORATION [None]
  - STAPHYLOCOCCAL SEPSIS [None]
